FAERS Safety Report 25239851 (Version 1)
Quarter: 2025Q2

REPORT INFORMATION
  Report Type: Spontaneous
  Country: US (occurrence: US)
  Receive Date: 20250425
  Receipt Date: 20250425
  Transmission Date: 20250716
  Serious: No
  Sender: GLAND PHARMA LTD
  Company Number: US-GLANDPHARMA-US-2025GLNSPO01037

PATIENT
  Sex: Male

DRUGS (1)
  1. DOXYCYCLINE [Suspect]
     Active Substance: DOXYCYCLINE
     Indication: Maculopathy
     Route: 065

REACTIONS (4)
  - Loss of personal independence in daily activities [Unknown]
  - Maculopathy [Unknown]
  - Condition aggravated [Unknown]
  - Product use in unapproved indication [Unknown]
